FAERS Safety Report 8423609-7 (Version None)
Quarter: 2012Q2

REPORT INFORMATION
  Report Type: 
  Country: None (occurrence: None)
  Receive Date: 20120608
  Receipt Date: 20120528
  Transmission Date: 20120825
  Serious: Yes (Other)
  Sender: FDA-Public Use
  Company Number: GB-MEDIMMUNE-MEDI-0015306

PATIENT
  Age: 10 Month
  Sex: Female
  Weight: 9.6 kg

DRUGS (4)
  1. DNASE [Concomitant]
     Indication: CYSTIC FIBROSIS
     Dosage: 1 IN 1 DAY, NEB (2.5 MG)
  2. FLUCLOXACILLIN [Concomitant]
     Indication: CYSTIC FIBROSIS
     Route: 048
  3. SYNAGIS [Suspect]
     Route: 030
  4. ALBUTEROL [Concomitant]
     Indication: CYSTIC FIBROSIS
     Dosage: 5 PUFFS, 100 MCG/PUFF,  PRN

REACTIONS (1)
  - RESPIRATORY SYNCYTIAL VIRUS BRONCHIOLITIS [None]
